FAERS Safety Report 10029608 (Version 1)
Quarter: 2014Q1

REPORT INFORMATION
  Report Type: Spontaneous
  Country: US (occurrence: None)
  Receive Date: 20140320
  Receipt Date: 20140320
  Transmission Date: 20141002
  Serious: No
  Sender: FDA-Public Use
  Company Number: None

PATIENT
  Age: 53 Year
  Sex: Male
  Weight: 90.9 kg

DRUGS (2)
  1. RIBAVIRIN 200MG ZYDUS [Suspect]
     Indication: HEPATITIS C
     Route: 048
     Dates: start: 20140221, end: 20140314
  2. SOVALDI 400MG QD GILEAD [Suspect]
     Indication: HEPATITIS C
     Route: 048
     Dates: start: 20140221, end: 20140314

REACTIONS (4)
  - Faeces discoloured [None]
  - Abdominal pain [None]
  - Abdominal discomfort [None]
  - Panic attack [None]
